FAERS Safety Report 20638316 (Version 1)
Quarter: 2022Q1

REPORT INFORMATION
  Report Type: Spontaneous
  Country: US (occurrence: None)
  Receive Date: 20220325
  Receipt Date: 20220325
  Transmission Date: 20220423
  Serious: No
  Sender: FDA-Public Use
  Company Number: None

PATIENT
  Age: 44 Year
  Sex: Male

DRUGS (1)
  1. COPAXONE [Suspect]
     Active Substance: GLATIRAMER ACETATE
     Indication: Multiple sclerosis
     Dosage: OTHER FREQUENCY : TIW;?
     Route: 058

REACTIONS (3)
  - Syringe issue [None]
  - Device difficult to use [None]
  - Injection site pain [None]

NARRATIVE: CASE EVENT DATE: 20220325
